FAERS Safety Report 8127335-3 (Version None)
Quarter: 2012Q1

REPORT INFORMATION
  Report Type: 
  Country: None (occurrence: None)
  Receive Date: 20120210
  Receipt Date: 20120130
  Transmission Date: 20120608
  Serious: Yes (Other)
  Sender: FDA-Public Use
  Company Number: DE-BRISTOL-MYERS SQUIBB COMPANY-16374993

PATIENT
  Age: 50 Year
  Sex: Male

DRUGS (2)
  1. CISPLATIN [Suspect]
     Indication: LUNG CANCER METASTATIC
  2. PEMETREXED DISODIUM [Suspect]
     Indication: LUNG CANCER METASTATIC

REACTIONS (1)
  - TOXIC EPIDERMAL NECROLYSIS [None]
